FAERS Safety Report 14310121 (Version 1)
Quarter: 2017Q4

REPORT INFORMATION
  Report Type: Spontaneous
  Country: US (occurrence: US)
  Receive Date: 20171220
  Receipt Date: 20171220
  Transmission Date: 20180321
  Serious: Yes (Other)
  Sender: FDA-Public Use
  Company Number: US-AKORN PHARMACEUTICALS-2017AKN01460

PATIENT
  Age: 21 Year
  Sex: Female
  Weight: 58.96 kg

DRUGS (3)
  1. ALCLOMETASONE [Concomitant]
     Active Substance: ALCLOMETASONE
     Route: 061
  2. SEASONIUQUE [Concomitant]
     Route: 048
  3. MYORISAN [Suspect]
     Active Substance: ISOTRETINOIN
     Indication: ACNE
     Dosage: 30 MG, 1X/DAY
     Route: 048
     Dates: start: 20171103, end: 20171207

REACTIONS (8)
  - Scar [Not Recovered/Not Resolved]
  - Lip dry [Recovering/Resolving]
  - Fatigue [Recovering/Resolving]
  - Acne [Not Recovered/Not Resolved]
  - Off label use [Not Recovered/Not Resolved]
  - Mood altered [Recovering/Resolving]
  - Dry skin [Recovering/Resolving]
  - Drug ineffective [Unknown]

NARRATIVE: CASE EVENT DATE: 2017
